FAERS Safety Report 7919777-3 (Version None)
Quarter: 2011Q4

REPORT INFORMATION
  Report Type: 
  Country: None (occurrence: None)
  Receive Date: 20111115
  Receipt Date: 20111107
  Transmission Date: 20120403
  Serious: Yes (Life-Threatening, Hospitalization, Other)
  Sender: FDA-Public Use
  Company Number: ACO_27257_2011

PATIENT
  Age: 68 Year
  Sex: Male

DRUGS (12)
  1. VITAMIN B-12 [Concomitant]
  2. ZINKOROTAT (ZINC OROTATE) [Concomitant]
  3. L-CARN (LEVOCARNITINE) [Concomitant]
  4. PROSTAGUTT (POPULUS SPP. EXTRACT, SERENOA REPENS EXRACT, URTICA SPP. E [Concomitant]
  5. VASO-LOGES (HOMOCYSTEINE THIOLACTONE) [Concomitant]
  6. COENZYME Q10 [Concomitant]
  7. FOSAVANCE (ALENDRONATE SODIUM, COLECALCIFEROL) [Concomitant]
  8. VITAMIN C   /00008001/ (ASCORBIC ACID) [Concomitant]
  9. FAMPYRA (DALFAMPRIDINE) TABLET [Suspect]
     Indication: GAIT DISTURBANCE
     Dosage: 10 MG, BID, ORAL
     Route: 048
     Dates: start: 20110922, end: 20111001
  10. VIGANTOLETTEN (COLECALCIFEROL) [Concomitant]
  11. SELEN   /00075001/ (SELENIUM) [Concomitant]
  12. CALCICARE (CALCIUM GLUBIONATE, COLECALCIFEROL) [Concomitant]

REACTIONS (5)
  - DRUG EFFECT DECREASED [None]
  - CORONARY ARTERY STENOSIS [None]
  - EPILEPSY [None]
  - TONIC CONVULSION [None]
  - VENTRICULAR FIBRILLATION [None]
